FAERS Safety Report 9758790 (Version 1)
Quarter: 2014Q2

REPORT INFORMATION
  Report Type: Spontaneous
  Country: US (occurrence: None)
  Receive Date: 20140514
  Receipt Date: 20140514
  Transmission Date: 20141212
  Serious: Yes (Other)
  Sender: FDA-Public Use
  Company Number: 065263

PATIENT
  Sex: Male

DRUGS (1)
  1. CIMZIA [Suspect]
     Dosage: (400 MG X/MONTH, STRENGTH: 200 MG SUBCUTANEOUS)
     Route: 058
     Dates: start: 20120109, end: 20120731

REACTIONS (1)
  - Convulsion [None]
